FAERS Safety Report 19449462 (Version 1)
Quarter: 2021Q2

REPORT INFORMATION
  Report Type: Spontaneous
  Country: US (occurrence: US)
  Receive Date: 20210622
  Receipt Date: 20210622
  Transmission Date: 20210717
  Serious: Yes (Life-Threatening, Other)
  Sender: FDA-Public Use
  Company Number: US-009507513-2106USA004677

PATIENT
  Age: 71 Year
  Sex: Male

DRUGS (2)
  1. BRIDION [Suspect]
     Active Substance: SUGAMMADEX
     Indication: NEUROMUSCULAR BLOCKADE REVERSAL
     Dosage: 400 MILLIGRAM (4MG/GK)
     Route: 042
  2. PROVENTIL [Concomitant]
     Active Substance: ALBUTEROL
     Dosage: 2 DOSAGE FORM (2 PUFFS)

REACTIONS (2)
  - Cardiac arrest [Recovered/Resolved]
  - Bronchospasm [Recovered/Resolved]
